FAERS Safety Report 8561477-3 (Version None)
Quarter: 2012Q3

REPORT INFORMATION
  Report Type: 
  Country: None (occurrence: None)
  Receive Date: 20120802
  Receipt Date: 19960124
  Transmission Date: 20120928
  Serious: No
  Sender: FDA-Public Use
  Company Number: US-009507513-96011608

PATIENT

DRUGS (3)
  1. DECADRON PHOSPHATE [Concomitant]
     Route: 048
     Dates: start: 19920101
  2. FOSAMAX [Suspect]
     Route: 048
     Dates: start: 19951110
  3. CALCIUM (UNSPECIFIED) [Concomitant]

REACTIONS (3)
  - ALOPECIA [None]
  - PLATELET COUNT INCREASED [None]
  - THERAPEUTIC RESPONSE UNEXPECTED [None]
